FAERS Safety Report 12111048 (Version 1)
Quarter: 2016Q1

REPORT INFORMATION
  Report Type: Not Available
  Country: US (occurrence: US)
  Receive Date: 20160224
  Receipt Date: 20160224
  Transmission Date: 20160526
  Serious: Yes (Other)
  Sender: FDA-Public Use
  Company Number: US-ANIPHARMA-2016-US-000674

PATIENT
  Age: 50 Year
  Sex: Male

DRUGS (6)
  1. DARUNAVIR [Concomitant]
     Active Substance: DARUNAVIR
  2. TENOVIR [Concomitant]
  3. RISPERIDONE (NON-SPECIFIC) [Suspect]
     Active Substance: RISPERIDONE
     Dosage: 3 MG TWICE PER DAY
  4. EMTRICITABINE [Concomitant]
     Active Substance: EMTRICITABINE
  5. RITONAVIR. [Suspect]
     Active Substance: RITONAVIR
  6. BACLOFEN. [Concomitant]
     Active Substance: BACLOFEN

REACTIONS (2)
  - Angioedema [Unknown]
  - Drug interaction [Unknown]
